FAERS Safety Report 10208853 (Version 1)
Quarter: 2014Q2

REPORT INFORMATION
  Report Type: Spontaneous
  Country: BR (occurrence: BR)
  Receive Date: 20140530
  Receipt Date: 20140530
  Transmission Date: 20141212
  Serious: Yes (Other)
  Sender: FDA-Public Use
  Company Number: BR-NAPPMUNDI-GBR-2014-0018602

PATIENT
  Age: 53 Year
  Sex: Female
  Weight: 85 kg

DRUGS (4)
  1. OXYCONTIN TABLETS 10 MG [Suspect]
     Indication: PROCEDURAL PAIN
     Dosage: 1 TABLET, Q12H
     Route: 048
     Dates: start: 20140513, end: 20140516
  2. CIPROFLOXACIN [Concomitant]
     Indication: ANKLE OPERATION
     Dosage: 500 MG, Q12H
     Route: 048
     Dates: start: 20140513
  3. CARBAMAZEPINE [Concomitant]
     Indication: CONVULSION
     Dosage: 1 TABLET, BID FOR ALMOST A YEAR
     Route: 048
  4. ANTIVIRALS FOR TREATMENT OF HIV INFECTIONS, C [Concomitant]
     Indication: HIV INFECTION
     Dosage: FOR 10 YEARS
     Route: 048

REACTIONS (3)
  - Cognitive disorder [Recovering/Resolving]
  - Respiratory depression [Recovering/Resolving]
  - Amnesia [Recovering/Resolving]
